FAERS Safety Report 7106101-1 (Version None)
Quarter: 2010Q4

REPORT INFORMATION
  Report Type: 
  Country: None (occurrence: None)
  Receive Date: 20101116
  Receipt Date: 20101111
  Transmission Date: 20110411
  Serious: Yes (Other)
  Sender: FDA-Public Use
  Company Number: US-MERCK-0705USA04136

PATIENT
  Age: 66 Year
  Sex: Female

DRUGS (1)
  1. FOSAMAX [Suspect]
     Indication: OSTEITIS DEFORMANS
     Route: 048
     Dates: start: 19970101, end: 20070226

REACTIONS (22)
  - ACTINOMYCOSIS [None]
  - AORTIC ANEURYSM [None]
  - APPENDIX DISORDER [None]
  - ARTHRITIS [None]
  - ARTHROPATHY [None]
  - BACK DISORDER [None]
  - DENTAL NECROSIS [None]
  - FATIGUE [None]
  - GASTROOESOPHAGEAL REFLUX DISEASE [None]
  - HYPERLIPIDAEMIA [None]
  - JAW DISORDER [None]
  - LETHARGY [None]
  - LUMBAR SPINAL STENOSIS [None]
  - MEMORY IMPAIRMENT [None]
  - MOUTH ULCERATION [None]
  - ORAL TORUS [None]
  - OSTEOMYELITIS [None]
  - OSTEONECROSIS OF JAW [None]
  - PERIODONTITIS [None]
  - PULPITIS DENTAL [None]
  - SIALOADENITIS [None]
  - SOMNOLENCE [None]
